FAERS Safety Report 5317508-7 (Version None)
Quarter: 2007Q2

REPORT INFORMATION
  Report Type: 
  Country: None (occurrence: None)
  Receive Date: 20070507
  Receipt Date: 20070424
  Transmission Date: 20071010
  Serious: Yes (Hospitalization)
  Sender: FDA-Public Use
  Company Number: PHEH2007US05267

PATIENT
  Age: 22 Year
  Sex: Female

DRUGS (1)
  1. ZELNORM [Suspect]
     Indication: IRRITABLE BOWEL SYNDROME
     Dosage: 6 MG, BID
     Route: 048
     Dates: start: 20051001, end: 20070330

REACTIONS (13)
  - ABDOMINAL PAIN [None]
  - CATHETERISATION VENOUS [None]
  - CHEST PAIN [None]
  - CONDITION AGGRAVATED [None]
  - DEHYDRATION [None]
  - DYSARTHRIA [None]
  - FALL [None]
  - HEART RATE INCREASED [None]
  - MEMORY IMPAIRMENT [None]
  - MIGRAINE [None]
  - PARENTERAL NUTRITION [None]
  - SINUSITIS [None]
  - VISION BLURRED [None]
